FAERS Safety Report 25996119 (Version 1)
Quarter: 2025Q4

REPORT INFORMATION
  Report Type: Spontaneous
  Country: US (occurrence: US)
  Receive Date: 20251104
  Receipt Date: 20251104
  Transmission Date: 20260117
  Serious: Yes (Hospitalization)
  Sender: BRISTOL-MYERS SQUIBB COMPANY
  Company Number: US-BRISTOL-MYERS SQUIBB COMPANY-2025-149186

PATIENT
  Age: 60 Year
  Sex: Female

DRUGS (1)
  1. LENALIDOMIDE [Suspect]
     Active Substance: LENALIDOMIDE
     Indication: Follicular lymphoma
     Dosage: TAKE 1 WHOLE CAPSULE BY MOUTH WITH WATER AT SAME TIME DAILY FOR 21 DAYS. DO NOT BREAK, CHEW, OR OPEN CAPSULES.
     Route: 048

REACTIONS (1)
  - Hospitalisation [Not Recovered/Not Resolved]
